FAERS Safety Report 19834551 (Version 1)
Quarter: 2021Q3

REPORT INFORMATION
  Report Type: Spontaneous
  Country: CN (occurrence: CN)
  Receive Date: 20210914
  Receipt Date: 20210914
  Transmission Date: 20211014
  Serious: Yes (Other)
  Sender: FDA-Public Use
  Company Number: CN-009507513-2109CHN002879

PATIENT
  Age: 58 Year
  Sex: Female

DRUGS (1)
  1. TIENAM [Suspect]
     Active Substance: CILASTATIN SODIUM\IMIPENEM
     Indication: GASTROINTESTINAL HAEMORRHAGE
     Dosage: DOSE: 1 G, FREQUENCY: EVERY 8 HOURS (Q8H)
     Route: 041
     Dates: start: 20210828, end: 20210904

REACTIONS (1)
  - Epilepsy [Recovering/Resolving]

NARRATIVE: CASE EVENT DATE: 20210904
